FAERS Safety Report 16085621 (Version 9)
Quarter: 2022Q1

REPORT INFORMATION
  Report Type: Report from Study
  Country: US (occurrence: US)
  Receive Date: 20190318
  Receipt Date: 20220329
  Transmission Date: 20220424
  Serious: Yes (Hospitalization, Other)
  Sender: FDA-Public Use
  Company Number: PHEH2019US010481

PATIENT
  Age: 51 Year
  Sex: Female

DRUGS (5)
  1. AFINITOR [Suspect]
     Active Substance: EVEROLIMUS
     Indication: Angiomyolipoma
     Dosage: 5 MG, QD
     Route: 048
     Dates: start: 20140214
  2. AFINITOR [Suspect]
     Active Substance: EVEROLIMUS
     Dosage: 5 MG, QD
     Route: 048
     Dates: start: 20140219
  3. FERROUS SULFATE [Concomitant]
     Active Substance: FERROUS SULFATE
     Indication: Anaemia
     Dosage: 325 MG, QD
     Route: 065
  4. VASCEPA [Concomitant]
     Active Substance: ICOSAPENT ETHYL
     Indication: Blood triglycerides
     Dosage: UNK
     Route: 065
  5. TUMS [Concomitant]
     Active Substance: CALCIUM CARBONATE
     Indication: Blood calcium increased
     Dosage: UNK
     Route: 065

REACTIONS (12)
  - Lymphangioleiomyomatosis [Unknown]
  - Pleural effusion [Unknown]
  - Lung abscess [Unknown]
  - Dyspnoea [Unknown]
  - Illness [Unknown]
  - Pneumonia [Unknown]
  - Haemorrhage [Unknown]
  - Muscular weakness [Unknown]
  - Tooth injury [Unknown]
  - Exposure to SARS-CoV-2 [Unknown]
  - Nasopharyngitis [Unknown]
  - Cold urticaria [Unknown]

NARRATIVE: CASE EVENT DATE: 20220321
